FAERS Safety Report 15052282 (Version 1)
Quarter: 2018Q2

REPORT INFORMATION
  Report Type: Spontaneous
  Country: US (occurrence: US)
  Receive Date: 20180622
  Receipt Date: 20180622
  Transmission Date: 20180711
  Serious: No
  Sender: FDA-Public Use
  Company Number: US-DENDREON PHARMACEUTICALS LLC-2017DEN000041

PATIENT

DRUGS (5)
  1. PROVENGE [Suspect]
     Active Substance: SIPULEUCEL-T
     Indication: PROSTATE CANCER
     Dosage: 250 ML 1 IN ID
     Route: 042
     Dates: start: 20171016, end: 20171016
  2. BENADRYL [Suspect]
     Active Substance: DIPHENHYDRAMINE HYDROCHLORIDE
     Dosage: UNK
     Dates: start: 20171030
  3. PROVENGE [Suspect]
     Active Substance: SIPULEUCEL-T
     Dosage: 250 ML 1 IN ID
     Route: 042
     Dates: start: 20171030, end: 20171030
  4. DEMEROL [Suspect]
     Active Substance: MEPERIDINE HYDROCHLORIDE
     Dosage: UNK
     Dates: start: 20171030
  5. LISINOPRIL. [Concomitant]
     Active Substance: LISINOPRIL
     Indication: CEREBRAL HAEMORRHAGE
     Dosage: 2.5 MG, QD
     Route: 048
     Dates: start: 201711

REACTIONS (2)
  - Abnormal behaviour [Recovered/Resolved]
  - Memory impairment [Recovered/Resolved]

NARRATIVE: CASE EVENT DATE: 20171030
